FAERS Safety Report 7370395-8 (Version None)
Quarter: 2011Q1

REPORT INFORMATION
  Report Type: 
  Country: None (occurrence: None)
  Receive Date: 20110323
  Receipt Date: 20110211
  Transmission Date: 20110831
  Serious: Yes (Death, Other)
  Sender: FDA-Public Use
  Company Number: US-BAXTER-2010BH003171

PATIENT
  Sex: Female

DRUGS (4)
  1. HEPARIN SODIUM INJECTION [Suspect]
     Route: 065
     Dates: start: 20071221
  2. HEPARIN SODIUM INJECTION [Suspect]
     Indication: CATHETERISATION CARDIAC
     Route: 065
     Dates: start: 20071203
  3. HEPARIN SODIUM INJECTION [Suspect]
     Route: 065
     Dates: start: 20071221
  4. HEPARIN SODIUM INJECTION [Suspect]
     Indication: CORONARY ARTERY BYPASS
     Route: 065
     Dates: start: 20071203

REACTIONS (13)
  - DYSPNOEA [None]
  - ANXIETY [None]
  - DIARRHOEA [None]
  - OROPHARYNGEAL PAIN [None]
  - RASH [None]
  - THROMBOSIS [None]
  - HYPERHIDROSIS [None]
  - VOMITING [None]
  - HYPOTENSION [None]
  - HALLUCINATION [None]
  - ABDOMINAL PAIN UPPER [None]
  - DEATH [None]
  - INFECTION [None]
